FAERS Safety Report 7996605-1 (Version None)
Quarter: 2011Q4

REPORT INFORMATION
  Report Type: 
  Country: None (occurrence: None)
  Receive Date: 20111221
  Receipt Date: 20111214
  Transmission Date: 20120403
  Serious: Yes (Hospitalization)
  Sender: FDA-Public Use
  Company Number: US-BIOGENIDEC-2011BI047291

PATIENT
  Age: 49 Year
  Sex: Female

DRUGS (1)
  1. AVONEX [Suspect]
     Indication: MULTIPLE SCLEROSIS
     Route: 030
     Dates: start: 19980101

REACTIONS (10)
  - JOINT DISLOCATION [None]
  - BLINDNESS UNILATERAL [None]
  - FALL [None]
  - MULTIPLE SCLEROSIS RELAPSE [None]
  - PAIN [None]
  - ROAD TRAFFIC ACCIDENT [None]
  - STRESS [None]
  - VOMITING [None]
  - EXCORIATION [None]
  - INFLUENZA LIKE ILLNESS [None]
